FAERS Safety Report 14238800 (Version 1)
Quarter: 2017Q4

REPORT INFORMATION
  Report Type: Spontaneous
  Country: US (occurrence: US)
  Receive Date: 20171130
  Receipt Date: 20171130
  Transmission Date: 20180321
  Serious: No
  Sender: FDA-Public Use
  Company Number: US-BAYER-2017-231933

PATIENT

DRUGS (1)
  1. ALEVE [Suspect]
     Active Substance: NAPROXEN SODIUM
     Indication: INFLAMMATION
     Route: 065

REACTIONS (2)
  - Off label use [Unknown]
  - Product use in unapproved indication [Unknown]
